FAERS Safety Report 12285117 (Version 1)
Quarter: 2016Q2

REPORT INFORMATION
  Report Type: Spontaneous
  Country: SG (occurrence: SG)
  Receive Date: 20160420
  Receipt Date: 20160420
  Transmission Date: 20160815
  Serious: Yes (Other)
  Sender: FDA-Public Use
  Company Number: SG-SUN PHARMACEUTICAL INDUSTRIES LTD-2016RR-115132

PATIENT
  Age: 34 Year
  Sex: Male

DRUGS (1)
  1. MINOCYCLINE [Suspect]
     Active Substance: MINOCYCLINE\MINOCYCLINE HYDROCHLORIDE
     Indication: BACTERIAL INFECTION
     Dosage: 100 MG, BID (LONG TERM)
     Route: 065

REACTIONS (3)
  - Impaired healing [Recovered/Resolved]
  - Femur fracture [Recovered/Resolved]
  - Bone hyperpigmentation [Unknown]
